FAERS Safety Report 7654850-9 (Version None)
Quarter: 2011Q3

REPORT INFORMATION
  Report Type: 
  Country: None (occurrence: None)
  Receive Date: 20110803
  Receipt Date: 20110803
  Transmission Date: 20111222
  Serious: Yes (Death)
  Sender: FDA-Public Use
  Company Number: None

PATIENT
  Sex: Male

DRUGS (1)
  1. TEMODAR [Suspect]
     Dosage: TEMODAR 20 MG CAPSULE  PO TAKE 1600 MG (1-100MG CAPSULE + 3-20MG CAPSULES) BY MOUTH DAILY
     Route: 048

REACTIONS (1)
  - GENERAL PHYSICAL CONDITION ABNORMAL [None]
